FAERS Safety Report 26126782 (Version 1)
Quarter: 2025Q4

REPORT INFORMATION
  Report Type: Spontaneous
  Country: US (occurrence: US)
  Receive Date: 20251205
  Receipt Date: 20251205
  Transmission Date: 20260118
  Serious: Yes (Hospitalization, Other)
  Sender: SANOFI AVENTIS
  Company Number: US-DialogSolutions-SAAVPROD-PI848559-C1

PATIENT
  Age: 71 Year
  Sex: Male

DRUGS (1)
  1. THYMOGLOBULIN [Suspect]
     Active Substance: LAPINE T-LYMPHOCYTE IMMUNE GLOBULIN
     Indication: Renal transplant
     Dosage: UNK

REACTIONS (15)
  - Post transplant lymphoproliferative disorder [Unknown]
  - Acute kidney injury [Unknown]
  - Abdominal pain [Unknown]
  - Pyrexia [Unknown]
  - Hepatic lesion [Unknown]
  - Abdominal lymphadenopathy [Unknown]
  - Splenomegaly [Unknown]
  - Human T-cell lymphotropic virus type I infection [Unknown]
  - Enterococcal infection [Unknown]
  - Tissue infiltration [Unknown]
  - Pseudomonas infection [Unknown]
  - Multiple organ dysfunction syndrome [Unknown]
  - Hepatitis C [Recovered/Resolved]
  - HIV infection [Unknown]
  - Latent tuberculosis [Recovered/Resolved]
